FAERS Safety Report 10143652 (Version 1)
Quarter: 2014Q2

REPORT INFORMATION
  Report Type: Spontaneous
  Country: US (occurrence: US)
  Receive Date: 20140430
  Receipt Date: 20140430
  Transmission Date: 20141212
  Serious: Yes (Other)
  Sender: FDA-Public Use
  Company Number: US-PFIZER INC-2014116628

PATIENT
  Age: 37 Year
  Sex: Female
  Weight: 58.96 kg

DRUGS (27)
  1. ALPRAZOLAM [Suspect]
     Indication: NERVE INJURY
     Dosage: 2 MG, 3X/DAY
     Route: 048
     Dates: start: 2014
  2. ALPRAZOLAM [Suspect]
     Indication: CONVULSION
  3. ALPRAZOLAM [Suspect]
     Indication: SPINAL DISORDER
  4. ALPRAZOLAM [Suspect]
     Indication: PANIC ATTACK
  5. ALPRAZOLAM [Suspect]
     Indication: ANXIETY
  6. ALPRAZOLAM [Suspect]
     Indication: SPINAL COLUMN STENOSIS
  7. ALPRAZOLAM [Suspect]
     Indication: OSTEOARTHRITIS
  8. ALPRAZOLAM [Suspect]
     Indication: TRICUSPID VALVE DISEASE
  9. ALPRAZOLAM [Suspect]
     Indication: INSOMNIA
  10. ALPRAZOLAM [Suspect]
     Indication: MULTIPLE SCLEROSIS
  11. ZIPSOR [Concomitant]
     Indication: ANTIINFLAMMATORY THERAPY
     Dosage: 25 MG, 3X/DAY
  12. ZIPSOR [Concomitant]
     Indication: MUSCLE SPASMS
  13. GABAPENTIN [Concomitant]
     Indication: CONVULSION
     Dosage: 300 MG, 3X/DAY
  14. GABAPENTIN [Concomitant]
     Indication: NERVE INJURY
  15. PERCOCET [Concomitant]
     Dosage: 325/10MG, 4X/DAY
  16. ZOLOFT [Concomitant]
     Indication: BIPOLAR I DISORDER
     Dosage: 50 MG, 1X/DAY
  17. ZOLOFT [Concomitant]
     Indication: POST-TRAUMATIC STRESS DISORDER
  18. XANAX [Concomitant]
     Indication: MULTIPLE SCLEROSIS
     Dosage: 2 MG, 3X/DAY
     Route: 048
     Dates: start: 2009, end: 2014
  19. XANAX [Concomitant]
     Indication: LUMBAR SPINAL STENOSIS
  20. XANAX [Concomitant]
     Indication: OSTEOARTHRITIS
  21. XANAX [Concomitant]
     Indication: NERVE INJURY
  22. XANAX [Concomitant]
     Indication: TRICUSPID VALVE DISEASE
  23. XANAX [Concomitant]
     Indication: INSOMNIA
  24. XANAX [Concomitant]
     Indication: CONVULSION
  25. XANAX [Concomitant]
     Indication: PANIC ATTACK
  26. XANAX [Concomitant]
     Indication: ANXIETY
  27. TEMAZEPAM [Concomitant]
     Indication: INSOMNIA
     Dosage: 30 MG, 1X/DAY

REACTIONS (23)
  - Convulsion [Unknown]
  - Spinal fracture [Unknown]
  - Femur fracture [Unknown]
  - Ankle fracture [Unknown]
  - Wrist fracture [Unknown]
  - Ligament sprain [Unknown]
  - Intentional product misuse [Unknown]
  - Drug ineffective [Unknown]
  - Pyrexia [Unknown]
  - Somnolence [Unknown]
  - Mood altered [Unknown]
  - Irritability [Unknown]
  - Nausea [Unknown]
  - Vomiting [Unknown]
  - Tremor [Unknown]
  - Malaise [Unknown]
  - Movement disorder [Unknown]
  - Drug intolerance [Unknown]
  - Headache [Unknown]
  - Visual impairment [Unknown]
  - Crying [Unknown]
  - Concussion [Unknown]
  - Feeling abnormal [Unknown]
